FAERS Safety Report 6905528-8 (Version None)
Quarter: 2010Q3

REPORT INFORMATION
  Report Type: 
  Country: None (occurrence: None)
  Receive Date: 20100804
  Receipt Date: 20100726
  Transmission Date: 20110219
  Serious: Yes (Disabling, Other)
  Sender: FDA-Public Use
  Company Number: CA-PFIZER INC-2010093315

PATIENT
  Age: 58 Year
  Sex: Male

DRUGS (1)
  1. LIPITOR [Suspect]
     Dosage: UNK

REACTIONS (9)
  - ADVERSE DRUG REACTION [None]
  - BLOOD CALCIUM INCREASED [None]
  - DISORIENTATION [None]
  - HAEMOGLOBIN DECREASED [None]
  - NERVOUS SYSTEM DISORDER [None]
  - PERSONALITY CHANGE [None]
  - RENAL FAILURE [None]
  - THYROID DISORDER [None]
  - WEIGHT DECREASED [None]
